FAERS Safety Report 8356519-4 (Version None)
Quarter: 2012Q2

REPORT INFORMATION
  Report Type: 
  Country: None (occurrence: None)
  Receive Date: 20120514
  Receipt Date: 20120430
  Transmission Date: 20120825
  Serious: Yes (Death)
  Sender: FDA-Public Use
  Company Number: PHHY2012FR040255

PATIENT

DRUGS (4)
  1. CYCLOSPORINE [Suspect]
     Indication: RENAL TRANSPLANT
  2. CORTICOSTEROIDS [Concomitant]
     Dosage: 5-10 MG/DAY
  3. EVEROLIMUS [Suspect]
     Indication: RENAL TRANSPLANT
  4. ANTI-IL-2 RECEPTOR ANTIBODIES [Concomitant]

REACTIONS (3)
  - BRONCHIAL CARCINOMA [None]
  - NEUROENDOCRINE CARCINOMA [None]
  - METASTASES TO LIVER [None]
